FAERS Safety Report 21915595 (Version 1)
Quarter: 2023Q1

REPORT INFORMATION
  Report Type: Spontaneous
  Country: JP (occurrence: JP)
  Receive Date: 20230126
  Receipt Date: 20230126
  Transmission Date: 20230418
  Serious: Yes (Death, Other)
  Sender: FDA-Public Use
  Company Number: JP-MSD-M2022-45098

PATIENT
  Age: 48 Year
  Sex: Female

DRUGS (3)
  1. KEYTRUDA [Suspect]
     Active Substance: PEMBROLIZUMAB
     Indication: Triple negative breast cancer
     Dosage: 200 MILLIGRAM, Q3W
     Route: 041
     Dates: start: 2022, end: 2022
  2. GEMCITABINE HYDROCHLORIDE [Suspect]
     Active Substance: GEMCITABINE HYDROCHLORIDE
     Indication: Triple negative breast cancer
     Dosage: UNK
     Route: 051
     Dates: start: 2022, end: 2022
  3. CARBOPLATIN [Suspect]
     Active Substance: CARBOPLATIN
     Indication: Triple negative breast cancer
     Dosage: UNK
     Route: 051
     Dates: start: 2022, end: 2022

REACTIONS (3)
  - Malignant neoplasm progression [Fatal]
  - Platelet count decreased [Recovering/Resolving]
  - Hepatic pain [Recovered/Resolved]

NARRATIVE: CASE EVENT DATE: 20221001
